FAERS Safety Report 5807910-9 (Version None)
Quarter: 2008Q3

REPORT INFORMATION
  Report Type: 
  Country: None (occurrence: None)
  Receive Date: 20080711
  Receipt Date: 20080701
  Transmission Date: 20090109
  Serious: Yes (Other)
  Sender: FDA-Public Use
  Company Number: JP-PFIZER INC-2008055619

PATIENT
  Sex: Female

DRUGS (2)
  1. XALATAN [Suspect]
     Indication: INTRAOCULAR PRESSURE INCREASED
     Route: 031
  2. OPHTHALMOLOGICALS [Concomitant]
     Route: 031

REACTIONS (1)
  - CATARACT [None]
